FAERS Safety Report 13474626 (Version 1)
Quarter: 2017Q2

REPORT INFORMATION
  Report Type: Spontaneous
  Country: FR (occurrence: FR)
  Receive Date: 20170424
  Receipt Date: 20170424
  Transmission Date: 20170830
  Serious: Yes (Other)
  Sender: FDA-Public Use
  Company Number: FR-ABBVIE-17P-056-1948590-00

PATIENT
  Age: 50 Year
  Sex: Female

DRUGS (2)
  1. VIEKIRAX [Suspect]
     Active Substance: OMBITASVIR\PARITAPREVIR\RITONAVIR
     Indication: CHRONIC HEPATITIS C
     Route: 048
     Dates: start: 20170109, end: 20170402
  2. EXVIERA [Suspect]
     Active Substance: DASABUVIR
     Indication: CHRONIC HEPATITIS C
     Route: 048
     Dates: start: 20170109, end: 20170402

REACTIONS (4)
  - Toxicity to various agents [Unknown]
  - Visual acuity reduced [Unknown]
  - Eye pain [Unknown]
  - Optic neuritis [Unknown]

NARRATIVE: CASE EVENT DATE: 201702
